FAERS Safety Report 9466800 (Version 2)
Quarter: 2013Q3

REPORT INFORMATION
  Report Type: Spontaneous
  Country: US (occurrence: US)
  Receive Date: 20130820
  Receipt Date: 20130904
  Transmission Date: 20140515
  Serious: No
  Sender: FDA-Public Use
  Company Number: US-PFIZER INC-2013240398

PATIENT
  Age: 33 Year
  Sex: Female
  Weight: 47.6 kg

DRUGS (5)
  1. ZOLOFT [Suspect]
     Indication: DEPRESSION
     Dosage: 25 MG, DAILY
     Route: 048
  2. ZOLOFT [Suspect]
     Indication: ANXIETY
  3. LYRICA [Suspect]
     Dosage: 50 MG, UNK
  4. TRINESSA [Concomitant]
     Dosage: UNK
  5. FLONASE [Concomitant]
     Dosage: UNK, 1X/DAY (QD)

REACTIONS (7)
  - Headache [Recovering/Resolving]
  - Vision blurred [Unknown]
  - Mydriasis [Recovering/Resolving]
  - Anxiety [Unknown]
  - Paraesthesia [Recovering/Resolving]
  - Yawning [Recovering/Resolving]
  - Hyperhidrosis [Recovering/Resolving]
